FAERS Safety Report 10065084 (Version 1)
Quarter: 2014Q2

REPORT INFORMATION
  Report Type: Spontaneous
  Country: US (occurrence: US)
  Receive Date: 20140408
  Receipt Date: 20140408
  Transmission Date: 20141212
  Serious: Yes (Death)
  Sender: FDA-Public Use
  Company Number: US-ACTELION-A-NJ2014-96886

PATIENT
  Age: 62 Year
  Sex: Male

DRUGS (2)
  1. VELETRI [Suspect]
     Indication: PULMONARY ARTERIAL HYPERTENSION
     Dosage: 48 NG/KG, PER MIN
     Route: 042
     Dates: start: 20110731
  2. COUMADIN [Concomitant]

REACTIONS (1)
  - Death [Fatal]
